FAERS Safety Report 25849164 (Version 1)
Quarter: 2025Q3

REPORT INFORMATION
  Report Type: Spontaneous
  Country: EU (occurrence: EU)
  Receive Date: 20250925
  Receipt Date: 20250925
  Transmission Date: 20251020
  Serious: Yes (Hospitalization)
  Sender: GE HEALTHCARE
  Company Number: EU-GE HEALTHCARE-2025CSU013033

PATIENT
  Age: 64 Year
  Sex: Female

DRUGS (1)
  1. OMNIPAQUE [Suspect]
     Active Substance: IOHEXOL
     Indication: Diagnostic procedure
     Route: 065
     Dates: start: 20250916, end: 20250916

REACTIONS (5)
  - Pseudoparalysis [Unknown]
  - Pharyngeal swelling [Unknown]
  - Swelling face [Unknown]
  - Flushing [Unknown]
  - Discomfort [Unknown]

NARRATIVE: CASE EVENT DATE: 20250916
